FAERS Safety Report 10275561 (Version 1)
Quarter: 2014Q2

REPORT INFORMATION
  Report Type: Spontaneous
  Country: US (occurrence: None)
  Receive Date: 20140630
  Receipt Date: 20140630
  Transmission Date: 20141212
  Serious: No
  Sender: FDA-Public Use
  Company Number: None

PATIENT
  Age: 30 Year
  Sex: Female
  Weight: 74.84 kg

DRUGS (1)
  1. PROACTIV EXTRA STRENGTH FORMULA [Suspect]
     Indication: ACNE
     Route: 061
     Dates: start: 20140625, end: 20140625

REACTIONS (11)
  - Erythema of eyelid [None]
  - Eyelid oedema [None]
  - Eye pruritus [None]
  - Eyelid rash [None]
  - Sensation of foreign body [None]
  - Dizziness [None]
  - Cough [None]
  - Dysphonia [None]
  - Dyspnoea [None]
  - Anxiety [None]
  - Product substitution issue [None]
